FAERS Safety Report 8245963-1 (Version None)
Quarter: 2012Q1

REPORT INFORMATION
  Report Type: 
  Country: None (occurrence: None)
  Receive Date: 20120330
  Receipt Date: 20120326
  Transmission Date: 20120608
  Serious: Yes (Other)
  Sender: FDA-Public Use
  Company Number: US-PFIZER INC-2012063098

PATIENT
  Sex: Male
  Weight: 86 kg

DRUGS (4)
  1. RAMIPRIL [Concomitant]
     Indication: CARDIAC DISORDER
     Dosage: 2.5 MG, DAILY
  2. OXYCONTIN [Suspect]
     Indication: PAIN
     Dosage: 40 MG, 2X/DAY
     Dates: start: 20120201
  3. LYRICA [Suspect]
     Indication: NEURALGIA
     Dosage: 50 MG, 2X/DAY
     Route: 048
     Dates: start: 20120201
  4. PRAVASTATIN [Concomitant]
     Indication: STENT PLACEMENT
     Dosage: 40 MG, DAILY

REACTIONS (3)
  - PHARYNGEAL OEDEMA [None]
  - SWOLLEN TONGUE [None]
  - DRY MOUTH [None]
